FAERS Safety Report 20532720 (Version 3)
Quarter: 2025Q2

REPORT INFORMATION
  Report Type: Report from Study
  Country: CA (occurrence: CA)
  Receive Date: 20220301
  Receipt Date: 20250407
  Transmission Date: 20250717
  Serious: Yes (Other)
  Sender: TAKEDA
  Company Number: CA-TAKEDA-2019TUS048811

PATIENT
  Sex: Female

DRUGS (10)
  1. VEDOLIZUMAB [Suspect]
     Active Substance: VEDOLIZUMAB
     Indication: Colitis ulcerative
  2. VEDOLIZUMAB [Suspect]
     Active Substance: VEDOLIZUMAB
  3. VEDOLIZUMAB [Suspect]
     Active Substance: VEDOLIZUMAB
  4. VEDOLIZUMAB [Suspect]
     Active Substance: VEDOLIZUMAB
  5. VEDOLIZUMAB [Suspect]
     Active Substance: VEDOLIZUMAB
  6. VEDOLIZUMAB [Suspect]
     Active Substance: VEDOLIZUMAB
  7. PENTASA [Concomitant]
     Active Substance: MESALAMINE
  8. GLUMETZA [Concomitant]
     Active Substance: METFORMIN HYDROCHLORIDE
  9. LYRICA [Concomitant]
     Active Substance: PREGABALIN
     Indication: Pain
  10. PANTOPRAZOLE SODIUM [Concomitant]
     Active Substance: PANTOPRAZOLE SODIUM

REACTIONS (6)
  - Colitis ulcerative [Recovering/Resolving]
  - Feeding disorder [Unknown]
  - Defaecation urgency [Not Recovered/Not Resolved]
  - Therapeutic reaction time decreased [Unknown]
  - Diarrhoea [Unknown]
  - Hyperhidrosis [Unknown]
